FAERS Safety Report 4381426-1 (Version None)
Quarter: 2004Q2

REPORT INFORMATION
  Report Type: 
  Country: None (occurrence: None)
  Receive Date: 20040617
  Receipt Date: 20040617
  Transmission Date: 20050107
  Serious: Yes (Hospitalization)
  Sender: FDA-Public Use
  Company Number: None

PATIENT
  Age: 55 Year
  Sex: Male
  Weight: 71 kg

DRUGS (12)
  1. CAPECITABINE 2000 MG/M2 [Suspect]
     Indication: PANCREATIC CARCINOMA
     Dosage: 3500 MG DAY 1-14 PO
     Route: 048
     Dates: start: 20040506, end: 20040514
  2. CAPECITABINE 2000 MG/M2 [Suspect]
     Indication: PANCREATIC CARCINOMA
     Dosage: 3500 MG DAY 1-14 PO
     Route: 048
     Dates: start: 20040528, end: 20040609
  3. OXALIPLATIN 130 MG/M2 [Suspect]
     Indication: PANCREATIC CARCINOMA
     Dosage: 237 MG DAY 1 IV
     Route: 042
     Dates: start: 20040506
  4. OXALIPLATIN 130 MG/M2 [Suspect]
     Indication: PANCREATIC CARCINOMA
     Dosage: 237 MG DAY 1 IV
     Route: 042
     Dates: start: 20040528
  5. IMODIUM [Concomitant]
  6. LOMOTIL [Concomitant]
  7. MOTOFEN [Concomitant]
  8. DTO [Concomitant]
  9. CREON [Concomitant]
  10. PROTONIX [Concomitant]
  11. FLOMAX [Concomitant]
  12. PERCOCET [Concomitant]

REACTIONS (5)
  - CONDITION AGGRAVATED [None]
  - DIARRHOEA [None]
  - FREQUENT BOWEL MOVEMENTS [None]
  - HAEMATOCHEZIA [None]
  - PALMAR-PLANTAR ERYTHRODYSAESTHESIA SYNDROME [None]
